FAERS Safety Report 5447322-3 (Version None)
Quarter: 2007Q3

REPORT INFORMATION
  Report Type: 
  Country: None (occurrence: None)
  Receive Date: 20070910
  Receipt Date: 20070907
  Transmission Date: 20080115
  Serious: Yes (Other)
  Sender: FDA-Public Use
  Company Number: TR-BRISTOL-MYERS SQUIBB COMPANY-13900543

PATIENT
  Age: 26 Year
  Sex: Female
  Weight: 47 kg

DRUGS (1)
  1. PROLIXIN DECANOATE [Suspect]
     Route: 030
     Dates: start: 20070831, end: 20070902

REACTIONS (7)
  - ARTHRALGIA [None]
  - CONVULSION [None]
  - DROOLING [None]
  - DYSARTHRIA [None]
  - HYPERHIDROSIS [None]
  - INSOMNIA [None]
  - MEDICATION ERROR [None]
